FAERS Safety Report 6675684-8 (Version None)
Quarter: 2010Q2

REPORT INFORMATION
  Report Type: 
  Country: None (occurrence: None)
  Receive Date: 20100409
  Receipt Date: 20100326
  Transmission Date: 20101027
  Serious: Yes (Life-Threatening, Other)
  Sender: FDA-Public Use
  Company Number: US-ELI_LILLY_AND_COMPANY-US200912004911

PATIENT
  Sex: Female

DRUGS (7)
  1. FORTEO [Suspect]
     Indication: OSTEOPOROSIS
     Dosage: 20 UG, DAILY (1/D)
     Dates: start: 20091106
  2. PREDNISONE [Concomitant]
     Indication: PANCREATITIS
  3. PRILOSEC [Concomitant]
  4. HYDROXYZINE [Concomitant]
  5. CLARITIN [Concomitant]
  6. AMBIEN [Concomitant]
  7. CALCIUM [Concomitant]

REACTIONS (2)
  - HEPATIC FAILURE [None]
  - PANCREATITIS [None]
